FAERS Safety Report 8143444 (Version 3)
Quarter: 2013Q2

REPORT INFORMATION
  Report Type: Spontaneous
  Country: US (occurrence: US)
  Receive Date: 20110920
  Receipt Date: 20130404
  Transmission Date: 20140414
  Serious: Yes (Other)
  Sender: FDA-Public Use
  Company Number: US-PFIZER INC-2009313571

PATIENT
  Age: 72 Year
  Sex: Female

DRUGS (17)
  1. ZOLOFT [Suspect]
     Indication: DEPRESSION
     Dosage: 6.25 MG, 1X/DAY
     Route: 048
     Dates: start: 20091120, end: 20091121
  2. ZOLOFT [Suspect]
     Dosage: 12.5 MG, 1X/DAY
     Route: 048
     Dates: start: 20091122, end: 20091123
  3. ZOLOFT [Suspect]
     Dosage: 25 MG, 1X/DAY
     Route: 048
     Dates: start: 20091124, end: 20091124
  4. BYSTOLIC [Interacting]
     Indication: EXTRASYSTOLES
     Dosage: 5 MG, 1X/DAY
     Route: 048
     Dates: start: 2008, end: 20091208
  5. BYSTOLIC [Interacting]
     Indication: HYPERTENSION
     Dosage: 10 MG, 1X/DAY
     Route: 048
     Dates: start: 20091209
  6. BYSTOLIC [Interacting]
     Dosage: 5 MG, 1X/DAY
     Route: 048
     Dates: end: 20100506
  7. BYSTOLIC [Interacting]
     Dosage: 2.5 MG, 1X/DAY
     Route: 048
     Dates: start: 20100507, end: 201303
  8. BYSTOLIC [Interacting]
     Dosage: 5 MG, 1X/DAY
     Route: 048
     Dates: start: 201303
  9. WELLBUTRIN [Interacting]
     Indication: DEPRESSION
     Dosage: 150 MG, 1X/DAY
     Route: 048
     Dates: start: 201108, end: 2011
  10. SYNTHROID [Concomitant]
     Indication: HYPOTHYROIDISM
     Dosage: 25 MCG, 1X/DAY
     Route: 048
  11. SYNTHROID [Concomitant]
     Dosage: 50 MCG, 1X/DAY
     Route: 048
  12. SYNTHROID [Concomitant]
     Dosage: 75 MCG, 1X/DAY
     Route: 048
  13. BUTALBITAL [Concomitant]
     Indication: MIGRAINE
     Dosage: UNK
     Route: 048
  14. GINKGO BILOBA [Concomitant]
     Dosage: UNK
     Route: 048
  15. MULTIVITAMINS [Concomitant]
     Dosage: UNK
     Route: 048
  16. CALCIUM WITH VITAMIN D [Concomitant]
     Dosage: UNK
     Route: 048
  17. FAMOTIDINE [Concomitant]
     Indication: GASTROOESOPHAGEAL REFLUX DISEASE
     Dosage: 40 MG, AS NEEDED

REACTIONS (9)
  - Atrioventricular block complete [Not Recovered/Not Resolved]
  - Extrasystoles [Not Recovered/Not Resolved]
  - Syncope [Not Recovered/Not Resolved]
  - Asthenia [Not Recovered/Not Resolved]
  - Tremor [Recovered/Resolved]
  - Drug interaction [Recovered/Resolved]
  - Palpitations [Not Recovered/Not Resolved]
  - Dizziness [Not Recovered/Not Resolved]
  - Drug ineffective [Recovered/Resolved]
